FAERS Safety Report 10783600 (Version 1)
Quarter: 2015Q1

REPORT INFORMATION
  Report Type: Spontaneous
  Country: NO (occurrence: NO)
  Receive Date: 20150210
  Receipt Date: 20150210
  Transmission Date: 20150721
  Serious: Yes (Other)
  Sender: FDA-Public Use
  Company Number: NO-ACTAVIS-2015-01826

PATIENT
  Age: 39 Year
  Sex: Male

DRUGS (1)
  1. TRAMADOL ACTAVIS [Suspect]
     Active Substance: TRAMADOL
     Indication: PRODUCT USED FOR UNKNOWN INDICATION
     Dosage: UNK
     Route: 048

REACTIONS (7)
  - Constipation [Recovering/Resolving]
  - Hyperhidrosis [Recovering/Resolving]
  - Sleep disorder [Recovering/Resolving]
  - Mood swings [Recovering/Resolving]
  - Anxiety [Recovering/Resolving]
  - Nausea [Recovering/Resolving]
  - Dysuria [Not Recovered/Not Resolved]
